FAERS Safety Report 10347009 (Version 1)
Quarter: 2014Q3

REPORT INFORMATION
  Report Type: Spontaneous
  Country: US (occurrence: None)
  Receive Date: 20140725
  Receipt Date: 20140725
  Transmission Date: 20150326
  Serious: Yes (Disabling)
  Sender: FDA-Public Use
  Company Number: None

PATIENT
  Age: 50 Year
  Sex: Female
  Weight: 72.58 kg

DRUGS (2)
  1. LEVAQUIN [Suspect]
     Active Substance: LEVOFLOXACIN
     Indication: WOUND
     Dosage: 500 MG X 7 DAYS ONCE DAILY TAKEN BY MOUTH
     Route: 048
     Dates: start: 20131010, end: 20131012
  2. LEVAQUIN [Suspect]
     Active Substance: LEVOFLOXACIN
     Indication: LIMB INJURY
     Dosage: 500 MG X 7 DAYS ONCE DAILY TAKEN BY MOUTH
     Route: 048
     Dates: start: 20131010, end: 20131012

REACTIONS (14)
  - Irritability [None]
  - Arthralgia [None]
  - Oedema peripheral [None]
  - Paraesthesia [None]
  - Headache [None]
  - Vision blurred [None]
  - Tendon disorder [None]
  - Muscle twitching [None]
  - Muscular weakness [None]
  - Muscle spasms [None]
  - Flushing [None]
  - Agitation [None]
  - Tendonitis [None]
  - Muscle tightness [None]

NARRATIVE: CASE EVENT DATE: 20131014
